FAERS Safety Report 4851027-7 (Version None)
Quarter: 2005Q4

REPORT INFORMATION
  Report Type: 
  Country: None (occurrence: None)
  Receive Date: 20051130
  Receipt Date: 20051017
  Transmission Date: 20060501
  Serious: No
  Sender: FDA-Public Use
  Company Number: FABR-11278

PATIENT
  Age: 55 Year
  Sex: Male
  Weight: 108 kg

DRUGS (11)
  1. FABRAZYME [Suspect]
     Indication: FABRY'S DISEASE
     Dosage: 105 MG Q2WKS IV
     Route: 042
     Dates: start: 20050210
  2. FABRAZYME [Suspect]
     Indication: FABRY'S DISEASE
     Dosage: 105 MG Q2WKS IV
     Route: 042
     Dates: start: 20040205
  3. GENGRAF [Concomitant]
  4. CELLCEPT [Concomitant]
  5. FOLTX [Concomitant]
  6. ALLOPURINOL [Concomitant]
  7. VASOTEC [Concomitant]
  8. ASPIRIN [Concomitant]
  9. AMOXICILLIN [Concomitant]
  10. COUMADIN [Concomitant]
  11. LASIX [Concomitant]

REACTIONS (2)
  - ARTHRITIS [None]
  - INTERVERTEBRAL DISC PROTRUSION [None]
